FAERS Safety Report 5767878-0 (Version None)
Quarter: 2008Q2

REPORT INFORMATION
  Report Type: 
  Country: None (occurrence: None)
  Receive Date: 20080612
  Receipt Date: 20080510
  Transmission Date: 20081010
  Serious: Yes (Other)
  Sender: FDA-Public Use
  Company Number: CN-BAYER-200819636GPV

PATIENT
  Age: 24 Year
  Sex: Female

DRUGS (1)
  1. ULTRAVIST 300 [Suspect]
     Indication: COMPUTERISED TOMOGRAM
     Dosage: TOTAL DAILY DOSE: 90 ML
     Route: 042
     Dates: start: 20080510, end: 20080510

REACTIONS (6)
  - BLOOD PRESSURE DECREASED [None]
  - COLD SWEAT [None]
  - DYSPHORIA [None]
  - ERYTHEMA [None]
  - PALLOR [None]
  - URINARY INCONTINENCE [None]
